FAERS Safety Report 8849430 (Version 2)
Quarter: 2012Q4

REPORT INFORMATION
  Report Type: 
  Country: JP (occurrence: JP)
  Receive Date: 20121019
  Receipt Date: 20121127
  Transmission Date: 20130627
  Serious: Yes (Other)
  Sender: FDA-Public Use
  Company Number: JP-GILEAD-2012-0063209

PATIENT
  Age: 51 Year
  Sex: Female

DRUGS (5)
  1. AMBRISENTAN [Suspect]
     Indication: PULMONARY ARTERIAL HYPERTENSION
     Dosage: 2.5MG Per day
     Route: 048
     Dates: start: 20120619, end: 20120626
  2. AMBRISENTAN [Suspect]
     Dosage: 2.5MG Per day
     Route: 048
     Dates: start: 20120702, end: 20120705
  3. BERASUS [Suspect]
     Indication: PULMONARY ARTERIAL HYPERTENSION
     Dosage: 60MCG Twice per day
     Route: 048
     Dates: start: 20120612, end: 20120625
  4. URDESTON [Concomitant]
     Indication: LIVER DISORDER
     Dosage: 200MG Three times per day
     Route: 048
     Dates: start: 20080718
  5. PORTOLAC [Concomitant]
     Indication: HYPERAMMONAEMIA
     Dosage: 6MG Three times per day
     Route: 048
     Dates: start: 20120215

REACTIONS (1)
  - Pancytopenia [Recovered/Resolved]
